FAERS Safety Report 4455111-1 (Version None)
Quarter: 2004Q3

REPORT INFORMATION
  Report Type: 
  Country: None (occurrence: None)
  Receive Date: 20040917
  Receipt Date: 20040909
  Transmission Date: 20050211
  Serious: Yes (Hospitalization)
  Sender: FDA-Public Use
  Company Number: HQWYE984510SEP04

PATIENT
  Age: 75 Year

DRUGS (5)
  1. EFFEXOR XR [Suspect]
     Dosage: 75 MG 1X PER 1 DAY, ORAL)
     Route: 048
     Dates: end: 20040101
  2. EFFEXOR XR [Suspect]
     Dosage: 150 MG 1 X PER 1 DAY, ORAL
     Route: 048
     Dates: start: 20040101, end: 20040101
  3. EFFEXOR XR [Suspect]
     Dosage: 75 MG 1X PER 1 DAY, ORAL
     Route: 048
     Dates: start: 20040101
  4. MADOPAR (BENSERAZIDE HYDROCHLORIDE/LEVODOPA) [Concomitant]
  5. COMTAN [Concomitant]

REACTIONS (3)
  - BRADYKINESIA [None]
  - MUSCULOSKELETAL STIFFNESS [None]
  - TREMOR [None]
